FAERS Safety Report 18447597 (Version 3)
Quarter: 2020Q4

REPORT INFORMATION
  Report Type: Report from Study
  Country: CO (occurrence: CO)
  Receive Date: 20201101
  Receipt Date: 20201114
  Transmission Date: 20210114
  Serious: Yes (Other)
  Sender: FDA-Public Use
  Company Number: NVSC2020CO289674

PATIENT
  Age: 67 Year
  Sex: Female
  Weight: 96 kg

DRUGS (7)
  1. FEMARA [Suspect]
     Active Substance: LETROZOLE
     Dosage: 2.5 MG, QD
     Route: 048
     Dates: start: 20201031
  2. METFORMIN [Suspect]
     Active Substance: METFORMIN HYDROCHLORIDE
     Indication: DIABETES MELLITUS
     Dosage: 850 MG, Q12H
     Route: 048
  3. VITAMIN D [Concomitant]
     Active Substance: VITAMIN D NOS
     Indication: PRODUCT USED FOR UNKNOWN INDICATION
     Dosage: UNK
     Route: 065
  4. FEMARA [Suspect]
     Active Substance: LETROZOLE
     Indication: BREAST CANCER METASTATIC
     Dosage: 2.5 MG, QD (STRENGTH: 2.5MG/1U) FOR 90 DAYS (THREE MONTHS)
     Route: 048
     Dates: start: 201709, end: 202010
  5. LEVOTHYROXINE. [Concomitant]
     Active Substance: LEVOTHYROXINE
     Indication: THYROID DISORDER
     Dosage: 75 MG, QD
     Route: 048
  6. ZOLEDRONIC ACID [Suspect]
     Active Substance: ZOLEDRONIC ACID
     Indication: METASTASES TO SPINE
     Dosage: UNK, Q3MO
     Route: 042
  7. CALCIUM [Concomitant]
     Active Substance: CALCIUM
     Indication: PRODUCT USED FOR UNKNOWN INDICATION
     Dosage: UNK
     Route: 065

REACTIONS (13)
  - Anorectal disorder [Unknown]
  - Papilloma viral infection [Unknown]
  - Hypertrophic anal papilla [Unknown]
  - Tumour marker increased [Unknown]
  - Product prescribing error [Unknown]
  - Bone lesion [Unknown]
  - Anogenital warts [Unknown]
  - Pain in extremity [Unknown]
  - Back pain [Unknown]
  - Arthralgia [Unknown]
  - Anogenital dysplasia [Unknown]
  - Anxiety [Unknown]
  - Product supply issue [Unknown]

NARRATIVE: CASE EVENT DATE: 201909
